FAERS Safety Report 8187622-X (Version None)
Quarter: 2012Q1

REPORT INFORMATION
  Report Type: 
  Country: None (occurrence: None)
  Receive Date: 20120306
  Receipt Date: 20120223
  Transmission Date: 20120608
  Serious: Yes (Death)
  Sender: FDA-Public Use
  Company Number: DE-CELGENEUS-062-50794-12011145

PATIENT
  Age: 71 Year
  Sex: Male
  Weight: 82 kg

DRUGS (9)
  1. VIDAZA [Suspect]
     Dosage: D 1-7
     Route: 058
     Dates: start: 20110322, end: 20110716
  2. PREDNISONE TAB [Suspect]
     Route: 065
  3. LEVOTHYROXINE SODIUM [Concomitant]
     Route: 065
  4. AUGMENTIN '125' [Concomitant]
     Indication: ANTIBIOTIC PROPHYLAXIS
     Dosage: 875/125
     Route: 065
  5. PANTOPRAZOLE [Concomitant]
     Route: 065
  6. METOPROLOL TARTRATE AND HYDROCHLOROTHIAZIDE [Concomitant]
     Route: 065
  7. INSULIN [Concomitant]
     Route: 065
  8. TORSEMIDE [Concomitant]
     Route: 065
  9. ARMODAFINIL [Concomitant]
     Route: 065

REACTIONS (1)
  - STAPHYLOCOCCAL SEPSIS [None]
